FAERS Safety Report 15000813 (Version 1)
Quarter: 2018Q2

REPORT INFORMATION
  Report Type: Spontaneous
  Country: US (occurrence: US)
  Receive Date: 20180523
  Receipt Date: 20180523
  Transmission Date: 20180711
  Serious: Yes (Disabling)
  Sender: FDA-Public Use
  Company Number: None

PATIENT
  Age: 54 Year
  Sex: Female
  Weight: 83.25 kg

DRUGS (2)
  1. LEVOTHYROXINE 112MCG [Suspect]
     Active Substance: LEVOTHYROXINE
     Indication: THYROIDECTOMY
     Dosage: ?          QUANTITY:1 TABLET(S);?
     Route: 048
     Dates: start: 20180201, end: 20180517
  2. CALCIUM [Concomitant]
     Active Substance: CALCIUM

REACTIONS (11)
  - Palpitations [None]
  - Gait disturbance [None]
  - Product quality issue [None]
  - Fatigue [None]
  - Dizziness [None]
  - Tendonitis [None]
  - Arthralgia [None]
  - Blood pressure fluctuation [None]
  - Joint stiffness [None]
  - Pain in extremity [None]
  - Influenza like illness [None]

NARRATIVE: CASE EVENT DATE: 20180201
